FAERS Safety Report 25027447 (Version 1)
Quarter: 2025Q1

REPORT INFORMATION
  Report Type: Spontaneous
  Country: US (occurrence: US)
  Receive Date: 20250301
  Receipt Date: 20250301
  Transmission Date: 20250409
  Serious: No
  Sender: SANOFI AVENTIS
  Company Number: US-SA-2025SA059563

PATIENT
  Age: 54 Year
  Sex: Female
  Weight: 70.91 kg

DRUGS (6)
  1. DUPIXENT [Suspect]
     Active Substance: DUPILUMAB
     Indication: Dermatitis atopic
     Dosage: 300 MG, QOW
     Route: 058
  2. DUPIXENT [Suspect]
     Active Substance: DUPILUMAB
     Indication: Psoriasis
  3. TALTZ [Concomitant]
     Active Substance: IXEKIZUMAB
  4. MOUNJARO [Concomitant]
     Active Substance: TIRZEPATIDE
  5. LISINOPRIL [Concomitant]
     Active Substance: LISINOPRIL
  6. ACITRETIN [Concomitant]
     Active Substance: ACITRETIN

REACTIONS (7)
  - Hyperkeratosis [Not Recovered/Not Resolved]
  - Dry skin [Not Recovered/Not Resolved]
  - Skin tightness [Not Recovered/Not Resolved]
  - Palmoplantar pustulosis [Recovered/Resolved]
  - Condition aggravated [Not Recovered/Not Resolved]
  - Pruritus [Not Recovered/Not Resolved]
  - Product use in unapproved indication [Unknown]
